FAERS Safety Report 6045049-0 (Version None)
Quarter: 2009Q1

REPORT INFORMATION
  Report Type: 
  Country: None (occurrence: None)
  Receive Date: 20090121
  Receipt Date: 20090114
  Transmission Date: 20090719
  Serious: Yes (Death, Life-Threatening, Disabling, Other)
  Sender: FDA-Public Use
  Company Number: FR-WYE-G02288208

PATIENT
  Sex: Male
  Weight: 67 kg

DRUGS (8)
  1. TORISEL [Suspect]
     Indication: RENAL CANCER METASTATIC
     Dosage: 25 MG EVERY 1 CYC
     Route: 042
     Dates: start: 20080906, end: 20080926
  2. PERFALGAN [Concomitant]
     Indication: CANCER PAIN
     Route: 042
     Dates: start: 20080915
  3. DURAGESIC-100 [Interacting]
     Indication: CANCER PAIN
     Dosage: PATCH AT 50 UG/H
     Route: 062
     Dates: start: 20080906, end: 20080910
  4. NEURONTIN [Concomitant]
     Indication: CANCER PAIN
     Dosage: 900 MG TOTAL DAILY
     Route: 048
     Dates: start: 20080912, end: 20081010
  5. KETAMINE [Interacting]
     Indication: CANCER PAIN
     Dosage: 50 MG TOTAL DAILY
     Route: 042
     Dates: start: 20080912, end: 20080927
  6. KETAMINE [Interacting]
     Dosage: 50 MG TOTAL DAILY
     Route: 042
     Dates: start: 20080927
  7. SUFENTANIL [Interacting]
     Indication: CANCER PAIN
     Dosage: 10 UG
     Route: 042
     Dates: start: 20080910, end: 20080927
  8. SUFENTANIL [Interacting]
     Dosage: 10 UG
     Route: 042
     Dates: start: 20080927

REACTIONS (9)
  - ALTERED STATE OF CONSCIOUSNESS [None]
  - CONDITION AGGRAVATED [None]
  - CONFUSIONAL STATE [None]
  - DISEASE PROGRESSION [None]
  - DRUG INTERACTION [None]
  - GENERAL PHYSICAL HEALTH DETERIORATION [None]
  - OVERDOSE [None]
  - RESPIRATORY DEPRESSION [None]
  - SOMNOLENCE [None]
